FAERS Safety Report 18015090 (Version 1)
Quarter: 2020Q3

REPORT INFORMATION
  Report Type: Spontaneous
  Country: US (occurrence: US)
  Receive Date: 20200713
  Receipt Date: 20200713
  Transmission Date: 20201103
  Serious: No
  Sender: FDA-Public Use
  Company Number: US-FOUNDATIONCONSUMERHC-2020-US-011642

PATIENT
  Age: 30 Year
  Sex: Female
  Weight: 70.31 kg

DRUGS (3)
  1. PLAN B ONE?STEP [Suspect]
     Active Substance: LEVONORGESTREL
     Indication: POST COITAL CONTRACEPTION
     Dosage: 1.5 MG X 1 DOSE
     Route: 048
     Dates: start: 20200607, end: 20200607
  2. UNSPECIFIED VITAMINS [Concomitant]
     Active Substance: VITAMINS
  3. HAIR AND NAIL VITAMINS [Concomitant]

REACTIONS (2)
  - Cough [Recovered/Resolved]
  - Vomiting [Recovered/Resolved]

NARRATIVE: CASE EVENT DATE: 20200607
